FAERS Safety Report 17227706 (Version 4)
Quarter: 2020Q1

REPORT INFORMATION
  Report Type: Spontaneous
  Country: US (occurrence: US)
  Receive Date: 20200103
  Receipt Date: 20200215
  Transmission Date: 20200409
  Serious: No
  Sender: FDA-Public Use
  Company Number: US-SHIRE-US201945227

PATIENT
  Sex: Female

DRUGS (1)
  1. XIIDRA [Suspect]
     Active Substance: LIFITEGRAST
     Indication: DRY EYE
     Dosage: 0.2 MILLILITER, 2X/DAY:BID
     Route: 047

REACTIONS (7)
  - Drug intolerance [Unknown]
  - Eye pain [Unknown]
  - Patient dissatisfaction with treatment [Unknown]
  - Vision blurred [Recovered/Resolved]
  - Eye disorder [Unknown]
  - Drug ineffective [Unknown]
  - Eye irritation [Unknown]
